FAERS Safety Report 6325454-5 (Version None)
Quarter: 2009Q3

REPORT INFORMATION
  Report Type: 
  Country: None (occurrence: None)
  Receive Date: 20090824
  Receipt Date: 20090710
  Transmission Date: 20100115
  Serious: No
  Sender: FDA-Public Use
  Company Number: US-ABBOTT-09P-163-0584139-00

PATIENT
  Sex: Female
  Weight: 80.812 kg

DRUGS (16)
  1. NIASPAN [Suspect]
     Indication: BLOOD CHOLESTEROL
     Dates: start: 20090425, end: 20090525
  2. NIASPAN [Suspect]
     Dates: end: 20090624
  3. NIASPAN [Suspect]
     Route: 048
     Dates: start: 20090625, end: 20090710
  4. COREG [Concomitant]
     Indication: DRUG USE FOR UNKNOWN INDICATION
  5. CRESTOR [Concomitant]
     Indication: DRUG USE FOR UNKNOWN INDICATION
  6. EXAMESTANE [Concomitant]
     Indication: ANTIOESTROGEN THERAPY
  7. ASPIRIN [Concomitant]
     Indication: DRUG USE FOR UNKNOWN INDICATION
  8. CENTRUM SILVER [Concomitant]
     Indication: DRUG USE FOR UNKNOWN INDICATION
  9. COQ10 [Concomitant]
     Indication: DRUG USE FOR UNKNOWN INDICATION
  10. CA [Concomitant]
     Indication: DRUG USE FOR UNKNOWN INDICATION
  11. LOVAZA [Concomitant]
     Indication: DRUG USE FOR UNKNOWN INDICATION
  12. VIT D [Concomitant]
     Indication: DRUG USE FOR UNKNOWN INDICATION
  13. EYE CAPS [Concomitant]
     Indication: DRUG USE FOR UNKNOWN INDICATION
  14. VIT C [Concomitant]
     Indication: DRUG USE FOR UNKNOWN INDICATION
  15. RESVERATROL [Concomitant]
     Indication: DRUG USE FOR UNKNOWN INDICATION
  16. ESTROGEN BLOCKERS [Concomitant]
     Indication: BREAST CANCER

REACTIONS (7)
  - DRY MOUTH [None]
  - JOINT RANGE OF MOTION DECREASED [None]
  - LIP EXFOLIATION [None]
  - NOCTURIA [None]
  - OEDEMA PERIPHERAL [None]
  - ORAL MUCOSAL ERUPTION [None]
  - SOMNOLENCE [None]
